FAERS Safety Report 8531572 (Version 4)
Quarter: 2012Q4

REPORT INFORMATION
  Report Type: 
  Country: US (occurrence: US)
  Receive Date: 20120426
  Receipt Date: 20121228
  Transmission Date: 20130627
  Serious: Yes (Other)
  Sender: FDA-Public Use
  Company Number: US-ASTRAZENECA-2011SE64420

PATIENT
  Age: 51 Year
  Sex: Female
  Weight: 59 kg

DRUGS (18)
  1. SEROQUEL [Suspect]
     Indication: DEPRESSION
     Route: 048
  2. SEROQUEL [Suspect]
     Indication: INSOMNIA
     Route: 048
  3. SEROQUEL [Suspect]
     Indication: SLEEP DISORDER
     Route: 048
  4. SEROQUEL [Suspect]
     Indication: ANXIETY
     Route: 048
  5. SEROQUEL [Suspect]
     Indication: MAJOR DEPRESSION
     Route: 048
  6. SEROQUEL [Suspect]
     Indication: DEPRESSION
     Route: 048
  7. SEROQUEL [Suspect]
     Indication: INSOMNIA
     Route: 048
  8. SEROQUEL [Suspect]
     Indication: SLEEP DISORDER
     Route: 048
  9. SEROQUEL [Suspect]
     Indication: ANXIETY
     Route: 048
  10. SEROQUEL [Suspect]
     Indication: MAJOR DEPRESSION
     Route: 048
  11. SEROQUEL [Suspect]
     Indication: DEPRESSION
     Route: 048
  12. SEROQUEL [Suspect]
     Indication: INSOMNIA
     Route: 048
  13. SEROQUEL [Suspect]
     Indication: SLEEP DISORDER
     Route: 048
  14. SEROQUEL [Suspect]
     Indication: ANXIETY
     Route: 048
  15. SEROQUEL [Suspect]
     Indication: MAJOR DEPRESSION
     Route: 048
  16. PAXIL [Concomitant]
     Indication: DEPRESSION
     Route: 048
  17. CLONAZEPAM [Concomitant]
     Indication: ANXIETY
     Route: 048
  18. METHADONE [Concomitant]
     Indication: PAIN
     Route: 048

REACTIONS (17)
  - Depression [Unknown]
  - Vocal cord disorder [Unknown]
  - Hyperhidrosis [Unknown]
  - Feeling abnormal [Unknown]
  - Periorbital contusion [Unknown]
  - Dyspnoea [Unknown]
  - Blood cholesterol increased [Unknown]
  - Weight increased [Unknown]
  - Drug dose omission [Unknown]
  - Intentional drug misuse [Unknown]
  - Suicidal ideation [Unknown]
  - Joint dislocation [Unknown]
  - Arthralgia [Unknown]
  - Fall [Unknown]
  - Head injury [Unknown]
  - Foot fracture [Unknown]
  - Insomnia [Unknown]
